FAERS Safety Report 12459670 (Version 1)
Quarter: 2016Q2

REPORT INFORMATION
  Report Type: Spontaneous
  Country: JP (occurrence: JP)
  Receive Date: 20160613
  Receipt Date: 20160613
  Transmission Date: 20160815
  Serious: Yes (Other)
  Sender: FDA-Public Use
  Company Number: JP-PFIZER INC-2016282355

PATIENT

DRUGS (1)
  1. SALAZOPYRIN [Suspect]
     Active Substance: SULFASALAZINE
     Indication: ENTEROCOLITIS
     Dosage: UNK
     Route: 048

REACTIONS (3)
  - Visual brightness [Unknown]
  - Visual impairment [Unknown]
  - Product use issue [Unknown]
